FAERS Safety Report 8579622-2 (Version None)
Quarter: 2012Q3

REPORT INFORMATION
  Report Type: 
  Country: None (occurrence: None)
  Receive Date: 20120731
  Receipt Date: 20120731
  Transmission Date: 20120928
  Serious: Yes (Other)
  Sender: FDA-Public Use
  Company Number: None

PATIENT
  Age: 39 Year
  Sex: Female

DRUGS (1)
  1. GEODON [Suspect]
     Dosage: 80 MG Q HS + BEFORE
     Dates: start: 20110221

REACTIONS (2)
  - SOMNAMBULISM [None]
  - PRODUCT SUBSTITUTION ISSUE [None]
